FAERS Safety Report 19186250 (Version 1)
Quarter: 2021Q2

REPORT INFORMATION
  Report Type: Report from Study
  Country: None (occurrence: AU)
  Receive Date: 20210427
  Receipt Date: 20210427
  Transmission Date: 20210717
  Serious: Yes (Other)
  Sender: FDA-Public Use
  Company Number: AU-ABBVIE-21K-008-3873872-00

PATIENT
  Age: 70 Year
  Sex: Male

DRUGS (6)
  1. FLUDROCORTISONE [Concomitant]
     Active Substance: FLUDROCORTISONE
     Indication: PRODUCT USED FOR UNKNOWN INDICATION
     Dosage: AT BREAKFAST
  2. DUODOPA [Suspect]
     Active Substance: CARBIDOPA\LEVODOPA
     Dosage: CONTINUOUS RATE 4.2ML/HR
     Route: 050
  3. MADOPAR [Concomitant]
     Active Substance: BENSERAZIDE HYDROCHLORIDE\LEVODOPA
     Indication: PRODUCT USED FOR UNKNOWN INDICATION
  4. DUODOPA [Suspect]
     Active Substance: CARBIDOPA\LEVODOPA
     Dosage: EXTRA DOSE 2.3ML WITH 1 HOUR LOCKOUT
     Route: 050
  5. DUODOPA [Suspect]
     Active Substance: CARBIDOPA\LEVODOPA
     Indication: PARKINSON^S DISEASE
     Dosage: MORNING DOSE 10.5ML
     Route: 050
     Dates: start: 20160308
  6. QUETIAPINE. [Concomitant]
     Active Substance: QUETIAPINE
     Indication: PRODUCT USED FOR UNKNOWN INDICATION

REACTIONS (15)
  - Neuropsychiatric symptoms [Unknown]
  - Cataract [Unknown]
  - Supine hypertension [Unknown]
  - Frustration tolerance decreased [Unknown]
  - Eye disorder [Not Recovered/Not Resolved]
  - Hallucination, visual [Unknown]
  - Confusional state [Unknown]
  - Dizziness postural [Unknown]
  - Incorrect route of product administration [Unknown]
  - On and off phenomenon [Unknown]
  - Cognitive disorder [Unknown]
  - Dementia [Unknown]
  - Device dislocation [Unknown]
  - Paranoia [Unknown]
  - Orthostatic hypotension [Unknown]

NARRATIVE: CASE EVENT DATE: 202012
